FAERS Safety Report 6686057-6 (Version None)
Quarter: 2010Q2

REPORT INFORMATION
  Report Type: 
  Country: None (occurrence: None)
  Receive Date: 20100414
  Receipt Date: 20100401
  Transmission Date: 20101027
  Serious: Yes (Death, Hospitalization)
  Sender: FDA-Public Use
  Company Number: 2010AL000078

PATIENT
  Sex: Female

DRUGS (6)
  1. FOLOTYN [Suspect]
     Indication: T-CELL LYMPHOMA
     Dosage: 30 MG/M**2
     Dates: start: 20100317, end: 20100317
  2. ETOPOSIDE [Concomitant]
  3. DOXORUBICIN HCL [Concomitant]
  4. VINCRISTINE [Concomitant]
  5. CYCLOPHOSPHAMIDE [Concomitant]
  6. PREDNISONE [Concomitant]

REACTIONS (2)
  - STOMATITIS [None]
  - TOXIC EPIDERMAL NECROLYSIS [None]
